FAERS Safety Report 9817003 (Version 2)
Quarter: 2014Q1

REPORT INFORMATION
  Report Type: Spontaneous
  Country: US (occurrence: US)
  Receive Date: 20140114
  Receipt Date: 20140303
  Transmission Date: 20141002
  Serious: No
  Sender: FDA-Public Use
  Company Number: US-BIOGENIDEC-2013BI121278

PATIENT
  Age: 64 Year
  Sex: Female

DRUGS (8)
  1. TECFIDERA [Suspect]
     Indication: MULTIPLE SCLEROSIS
     Route: 048
     Dates: start: 20130608, end: 20130614
  2. TECFIDERA [Suspect]
     Indication: MULTIPLE SCLEROSIS
     Route: 048
     Dates: start: 20130615
  3. TECFIDERA [Suspect]
     Indication: MULTIPLE SCLEROSIS
     Route: 048
     Dates: start: 20131217
  4. NEURONTIN [Concomitant]
  5. CEFUROXIME AXETIL [Concomitant]
  6. METHYLPREDNISOLONE (PAK) [Concomitant]
  7. DULOXETINE HCL [Concomitant]
  8. ALBUTEROL SULFATE [Concomitant]

REACTIONS (9)
  - Hyperhidrosis [Not Recovered/Not Resolved]
  - Pollakiuria [Not Recovered/Not Resolved]
  - Oedema peripheral [Not Recovered/Not Resolved]
  - Muscle spasms [Unknown]
  - Upper respiratory tract infection [Unknown]
  - Dysphonia [Unknown]
  - Night sweats [Unknown]
  - Nausea [Not Recovered/Not Resolved]
  - Flushing [Unknown]
